FAERS Safety Report 8251058-3 (Version None)
Quarter: 2012Q2

REPORT INFORMATION
  Report Type: 
  Country: None (occurrence: None)
  Receive Date: 20120402
  Receipt Date: 20120326
  Transmission Date: 20120825
  Serious: Yes (Hospitalization)
  Sender: FDA-Public Use
  Company Number: FR-ASTRAZENECA-2012SE20634

PATIENT
  Age: 73 Year
  Sex: Female

DRUGS (8)
  1. QUETIAPINE FUMARATE [Interacting]
     Route: 048
     Dates: start: 20120224
  2. ACETAMINOPHEN AND TRAMADOL HCL [Interacting]
     Indication: PAIN
     Route: 048
  3. TRIMEPRAZINE TARTRATE [Interacting]
     Indication: INSOMNIA
     Route: 048
     Dates: start: 20120111, end: 20120224
  4. XANAX [Interacting]
     Indication: ANXIETY
     Route: 048
     Dates: start: 20120111
  5. QUETIAPINE FUMARATE [Suspect]
     Indication: BIPOLAR II DISORDER
     Route: 048
     Dates: start: 20120111, end: 20120223
  6. ACUPAN [Interacting]
     Indication: PAIN
     Route: 048
     Dates: start: 20111201
  7. PRIMPERAN TAB [Concomitant]
     Route: 048
     Dates: start: 20110101
  8. TRIMEPRAZINE TARTRATE [Interacting]
     Route: 048
     Dates: start: 20120225

REACTIONS (8)
  - INSOMNIA [None]
  - ANOSOGNOSIA [None]
  - AGITATION [None]
  - FLIGHT OF IDEAS [None]
  - IRRITABILITY [None]
  - SUSPICIOUSNESS [None]
  - LOGORRHOEA [None]
  - DRUG INTERACTION [None]
